FAERS Safety Report 6848352-7 (Version None)
Quarter: 2010Q3

REPORT INFORMATION
  Report Type: 
  Country: None (occurrence: None)
  Receive Date: 20100714
  Receipt Date: 20100703
  Transmission Date: 20110219
  Serious: Yes (Death)
  Sender: FDA-Public Use
  Company Number: US-JNJFOC-20100701800

PATIENT

DRUGS (6)
  1. DECITABINE (DECITABINE) LYOPHILIZED POWDER [Suspect]
     Indication: ACUTE MYELOID LEUKAEMIA
     Dosage: 20 MG/M2, IN 1 DAY, INTRAVENOUS
     Route: 042
  2. CLOFARABINE (CLOFARABINE) UNSPECIFIED [Suspect]
     Indication: ACUTE MYELOID LEUKAEMIA
     Dosage: 20 MG/M2, INTRAVENOUS (NOT OTHERWISE SPECIFIED)
     Route: 042
  3. CYTARABINE [Suspect]
     Indication: ACUTE MYELOID LEUKAEMIA
     Dosage: 20 MG, 2 IN 1 DAY, SUBCUTANEOUS
     Route: 058
  4. LEVOFLOXACIN [Concomitant]
  5. VALACYCLOVIR [Concomitant]
  6. ITRACONAZOLE [Concomitant]

REACTIONS (1)
  - DEATH [None]
